FAERS Safety Report 6265670-4 (Version None)
Quarter: 2009Q3

REPORT INFORMATION
  Report Type: 
  Country: None (occurrence: None)
  Receive Date: 20090713
  Receipt Date: 20090708
  Transmission Date: 20100115
  Serious: Yes (Hospitalization)
  Sender: FDA-Public Use
  Company Number: US-ASTRAZENECA-2009UW19011

PATIENT
  Age: 53 Year
  Sex: Female

DRUGS (9)
  1. CRESTOR [Suspect]
     Route: 048
  2. METOPROLOL TARTRATE [Concomitant]
     Indication: HYPERTENSION
  3. METFORMIN HCL [Concomitant]
     Indication: DIABETES MELLITUS
  4. ASPIRIN [Concomitant]
     Indication: CARDIAC DISORDER
  5. SPIRONOLACTONE [Concomitant]
     Indication: CARDIAC DISORDER
  6. SPIRONOLACTONE [Concomitant]
     Indication: HYPERTENSION
  7. PREMPRO [Concomitant]
     Indication: MENOPAUSE
  8. BENICAR HCT [Concomitant]
  9. ALEVE [Concomitant]

REACTIONS (1)
  - ANAPHYLACTIC REACTION [None]
